FAERS Safety Report 8162622-4 (Version None)
Quarter: 2012Q1

REPORT INFORMATION
  Report Type: 
  Country: None (occurrence: None)
  Receive Date: 20120103
  Receipt Date: 20111109
  Transmission Date: 20120608
  Serious: No
  Sender: FDA-Public Use
  Company Number: AE-2011-001835

PATIENT
  Age: 55 Year
  Sex: Female
  Weight: 48.9885 kg

DRUGS (7)
  1. LEVOTRIX (LEVOTHYROXINE) [Concomitant]
  2. ACETAMINOPHEN [Concomitant]
  3. RIBAVIRIN [Concomitant]
  4. MEPRAZOLE (OMEPRAZOLE) [Concomitant]
  5. PEGASYS [Concomitant]
  6. INCIVEK [Suspect]
     Dosage: 2250 MG (750 MG, 1 IN 8 HR), ORAL
     Route: 048
     Dates: start: 20110922, end: 20111022
  7. INCIVEK [Suspect]
     Dosage: 2250 MG (750 MG, 1 IN 8 HR), ORAL
     Route: 048
     Dates: start: 20111105, end: 20111109

REACTIONS (10)
  - FAECES PALE [None]
  - DEHYDRATION [None]
  - ANAEMIA [None]
  - VOMITING [None]
  - ASTHENIA [None]
  - MOUTH ULCERATION [None]
  - HYPERHIDROSIS [None]
  - DRY SKIN [None]
  - NAUSEA [None]
  - PRURITUS [None]
